FAERS Safety Report 8778469 (Version 2)
Quarter: 2012Q4

REPORT INFORMATION
  Report Type: 
  Country: US (occurrence: US)
  Receive Date: 20120912
  Receipt Date: 20121109
  Transmission Date: 20130627
  Serious: Yes (Other)
  Sender: FDA-Public Use
  Company Number: US-BAYER-2012-094692

PATIENT
  Age: 64 Year
  Sex: Male

DRUGS (5)
  1. BAYER ADVANCED ASPIRIN EXTRA STRENGTH [Suspect]
     Indication: HEADACHE
     Dosage: 1 DF, PRN, bottle count 20s
     Route: 048
     Dates: start: 2011
  2. LISINOPRIL [Concomitant]
  3. ONE-A-DAY MEN^S 50 + ADVANTAGE [Concomitant]
     Indication: VITAMIN SUPPLEMENTATION
  4. ZEGERID [Concomitant]
  5. BAYER ASPIRIN REGIMEN ADULT LOW STRENGTH [Concomitant]
     Indication: MYOCARDIAL INFARCT PROPHYLAXIS

REACTIONS (3)
  - Glossodynia [Recovered/Resolved]
  - Skin lesion [Not Recovered/Not Resolved]
  - Thermal burn [Recovered/Resolved]
